FAERS Safety Report 7647595-2 (Version None)
Quarter: 2011Q3

REPORT INFORMATION
  Report Type: 
  Country: None (occurrence: None)
  Receive Date: 20110801
  Receipt Date: 20110722
  Transmission Date: 20111222
  Serious: Yes (Other)
  Sender: FDA-Public Use
  Company Number: US-AMGEN-USASP2011037499

PATIENT
  Age: 73 Year
  Sex: Female

DRUGS (4)
  1. CALCIUM WITH VITAMIN D             /00944201/ [Concomitant]
  2. B12                                /00056201/ [Concomitant]
     Dosage: UNK
  3. PROLIA [Suspect]
     Indication: OSTEOPOROSIS POSTMENOPAUSAL
     Dosage: 60 MG, Q6MO
     Dates: start: 20110610
  4. SIMVASTATIN [Concomitant]

REACTIONS (6)
  - TOOTH DISORDER [None]
  - TOOTH LOSS [None]
  - GINGIVAL PAIN [None]
  - DENTAL CARIES [None]
  - GINGIVAL OPERATION [None]
  - INFLAMMATION [None]
